FAERS Safety Report 15229884 (Version 7)
Quarter: 2018Q4

REPORT INFORMATION
  Report Type: Report from Study
  Country: HU (occurrence: HU)
  Receive Date: 20180802
  Receipt Date: 20181127
  Transmission Date: 20190204
  Serious: Yes (Hospitalization)
  Sender: FDA-Public Use
  Company Number: HU-VELOXIS PHARMACEUTICALS, INC.-2018VELHU1061

PATIENT
  Age: 43 Year
  Sex: Male

DRUGS (18)
  1. ENVARSUS XR [Suspect]
     Active Substance: TACROLIMUS
     Dosage: 9 MG, QD
     Route: 048
     Dates: start: 20180712
  2. ENVARSUS XR [Suspect]
     Active Substance: TACROLIMUS
     Dosage: 8 MG, QD
     Route: 048
     Dates: start: 20180719, end: 20180731
  3. SIMULECT [Concomitant]
     Active Substance: BASILIXIMAB
     Indication: PROPHYLAXIS AGAINST TRANSPLANT REJECTION
     Dosage: UNK, PARENTERAL
     Route: 065
  4. ENVARSUS XR [Suspect]
     Active Substance: TACROLIMUS
     Dosage: 10 MG, QD
     Route: 048
     Dates: start: 20180607
  5. ENVARSUS XR [Suspect]
     Active Substance: TACROLIMUS
     Dosage: 7 MG, UNK
     Route: 048
     Dates: start: 20180731, end: 20180808
  6. ENVARSUS XR [Suspect]
     Active Substance: TACROLIMUS
     Dosage: 10 MG, QD
     Route: 048
     Dates: start: 20180620
  7. MYFORTIC [Concomitant]
     Active Substance: MYCOPHENOLATE SODIUM
     Indication: IMMUNOSUPPRESSANT DRUG THERAPY
     Dosage: 720 MG, BID
     Route: 048
  8. PREDNISOLON                        /00016201/ [Concomitant]
     Active Substance: PREDNISOLONE
     Dosage: 5 MG, UNK
     Dates: start: 20180809
  9. ENVARSUS XR [Suspect]
     Active Substance: TACROLIMUS
     Indication: PROPHYLAXIS AGAINST TRANSPLANT REJECTION
     Dosage: 12 MG, QD
     Route: 048
     Dates: start: 20180426
  10. TENAXUM [Concomitant]
     Active Substance: RILMENIDINE
     Indication: HYPERTENSION
     Dosage: 1 MG, BID
     Route: 048
  11. ENVARSUS XR [Suspect]
     Active Substance: TACROLIMUS
     Dosage: 12 MG, QD
     Route: 048
     Dates: start: 20180523
  12. VALCYTE [Concomitant]
     Active Substance: VALGANCICLOVIR HYDROCHLORIDE
     Indication: ANTIVIRAL PROPHYLAXIS
     Dosage: 450 MG, EVERY SECOND DAY
     Route: 048
  13. ENVARSUS XR [Suspect]
     Active Substance: TACROLIMUS
     Dosage: 11 MG, QD
     Route: 048
     Dates: start: 20180531
  14. ENVARSUS XR [Suspect]
     Active Substance: TACROLIMUS
     Dosage: 9 MG, QD
     Route: 048
     Dates: start: 20180614
  15. ENVARSUS XR [Suspect]
     Active Substance: TACROLIMUS
     Dosage: 3 MG, UNK
     Route: 048
     Dates: start: 20180809
  16. MYFORTIC [Concomitant]
     Active Substance: MYCOPHENOLATE SODIUM
     Dosage: 720 MG, BID
     Dates: start: 20180719, end: 20180808
  17. PREDNISOLON                        /00016201/ [Concomitant]
     Active Substance: PREDNISOLONE
     Indication: IMMUNOSUPPRESSANT DRUG THERAPY
     Dosage: 10 MG, QD, MORNING
     Route: 048
  18. QUAMATEL [Concomitant]
     Active Substance: FAMOTIDINE
     Indication: PROPHYLAXIS AGAINST GASTROINTESTINAL ULCER
     Dosage: 40 MG, QD, MORNING
     Route: 048

REACTIONS (2)
  - Blood creatinine increased [Recovered/Resolved]
  - Immunosuppressant drug level increased [Recovered/Resolved]

NARRATIVE: CASE EVENT DATE: 20180719
